FAERS Safety Report 9030792 (Version 2)
Quarter: 2013Q1

REPORT INFORMATION
  Report Type: Report from Study
  Country: FI (occurrence: FI)
  Receive Date: 20130114
  Receipt Date: 20130114
  Transmission Date: 20140127
  Serious: Yes (Death)
  Sender: FDA-Public Use
  Company Number: FI-ROCHE-1175757

PATIENT
  Sex: 0

DRUGS (3)
  1. ALTEPLASE [Suspect]
     Indication: ACUTE MYOCARDIAL INFARCTION
     Route: 040
  2. ALTEPLASE [Suspect]
     Dosage: DURING 30 MIN
     Route: 040
  3. ALTEPLASE [Suspect]
     Dosage: IN NEXT 60 MIN
     Route: 040

REACTIONS (1)
  - Death [Fatal]
